FAERS Safety Report 17023408 (Version 3)
Quarter: 2019Q4

REPORT INFORMATION
  Report Type: Report from Study
  Country: DE (occurrence: DE)
  Receive Date: 20191112
  Receipt Date: 20191224
  Transmission Date: 20200122
  Serious: Yes (Hospitalization, Other)
  Sender: FDA-Public Use
  Company Number: DE-BAXTER-2019BAX023013

PATIENT
  Age: 66 Year
  Sex: Male
  Weight: 85 kg

DRUGS (136)
  1. DOXIL [Suspect]
     Active Substance: DOXORUBICIN HYDROCHLORIDE
     Dosage: 99 MG, INFUSION RATE 8.3 ML/MIN FROM 09:35 TO 10:05
     Route: 041
     Dates: start: 20180404, end: 20180404
  2. CYCLOPHOSPHAMIDE. [Suspect]
     Active Substance: CYCLOPHOSPHAMIDE
     Dosage: 1480 MG, (INFUSION RATE 4.2 ML/MIN FROM 08:00 TO 10:00)
     Route: 041
     Dates: start: 20180704, end: 20180704
  3. CYCLOPHOSPHAMIDE. [Suspect]
     Active Substance: CYCLOPHOSPHAMIDE
     Dosage: 1480 MG, (INFUSION RATE 4.17 ML/MIN FROM 07:35 TO 09:35)
     Route: 042
     Dates: start: 20180503, end: 20180503
  4. VINCRISTINE [Suspect]
     Active Substance: VINCRISTINE
     Dosage: INFUSION RATE 2 ML/MIN FROM 07:55 TO 08:00
     Route: 041
     Dates: start: 20180808, end: 20180808
  5. NEULASTA [Suspect]
     Active Substance: PEGFILGRASTIM
     Route: 058
     Dates: start: 20180525, end: 20180525
  6. CLEMASTINE [Concomitant]
     Active Substance: CLEMASTINE
     Route: 042
     Dates: start: 20180522, end: 20180522
  7. MESNA. [Concomitant]
     Active Substance: MESNA
     Route: 042
     Dates: start: 20180221, end: 20180221
  8. MESNA. [Concomitant]
     Active Substance: MESNA
     Route: 042
     Dates: start: 20180523, end: 20180523
  9. AMPHO MORONAL [Concomitant]
     Active Substance: AMPHOTERICIN B
     Route: 048
     Dates: start: 20180522, end: 20180528
  10. RANITIDINE. [Concomitant]
     Active Substance: RANITIDINE
     Route: 042
     Dates: start: 20180312, end: 20180312
  11. PREDNISOLONE SODIUM SUCCINATE [Concomitant]
     Active Substance: PREDNISOLONE SODIUM SUCCINATE
     Route: 042
     Dates: start: 20180612, end: 20180612
  12. KEVATRIL [Concomitant]
     Active Substance: GRANISETRON HYDROCHLORIDE
     Route: 042
     Dates: start: 20180314, end: 20180314
  13. KEVATRIL [Concomitant]
     Active Substance: GRANISETRON HYDROCHLORIDE
     Route: 042
     Dates: start: 20180613, end: 20180613
  14. SALBUTAMOL [Concomitant]
     Active Substance: ALBUTEROL
     Route: 048
  15. DOXIL [Suspect]
     Active Substance: DOXORUBICIN HYDROCHLORIDE
     Dosage: 99 MG, INFUSION RATE 8.3 ML/MIN FROM 9:35 TO 10:05
     Route: 041
     Dates: start: 20180503, end: 20180503
  16. CYCLOPHOSPHAMIDE. [Suspect]
     Active Substance: CYCLOPHOSPHAMIDE
     Dosage: 1480 MG, (INFUSION RATE 4.2 ML/MIN FROM 08:00 TO 10:00)
     Route: 042
     Dates: start: 20180523, end: 20180523
  17. RITUXIMAB. [Suspect]
     Active Substance: RITUXIMAB
     Dosage: 740 MG, (INFUSION RATE 8.3 ML/MIN FROM 07:30 TO 09:30)
     Route: 041
     Dates: start: 20180403, end: 20180403
  18. PREDNISONE. [Suspect]
     Active Substance: PREDNISONE
     Dosage: 400 MG, UNK
     Route: 048
     Dates: start: 20180404, end: 20180407
  19. PARACETAMOL [Concomitant]
     Active Substance: ACETAMINOPHEN
     Dosage: UNK
     Route: 048
     Dates: start: 20180502, end: 20180502
  20. CLEMASTINE [Concomitant]
     Active Substance: CLEMASTINE
     Route: 042
     Dates: start: 20180219, end: 20180219
  21. MESNA. [Concomitant]
     Active Substance: MESNA
     Indication: PROPHYLAXIS
     Route: 042
     Dates: start: 20180221, end: 20180404
  22. MESNA. [Concomitant]
     Active Substance: MESNA
     Route: 042
     Dates: start: 20180404, end: 20180404
  23. MESNA. [Concomitant]
     Active Substance: MESNA
     Route: 042
     Dates: start: 20180523, end: 20180523
  24. AMPHO MORONAL [Concomitant]
     Active Substance: AMPHOTERICIN B
     Route: 048
     Dates: start: 20180612, end: 20180618
  25. PREDNISOLONE SODIUM SUCCINATE [Concomitant]
     Active Substance: PREDNISOLONE SODIUM SUCCINATE
     Indication: PROPHYLAXIS
     Route: 042
     Dates: start: 20180219, end: 20180219
  26. KEVATRIL [Concomitant]
     Active Substance: GRANISETRON HYDROCHLORIDE
     Route: 042
     Dates: start: 20180503, end: 20180503
  27. KEVATRIL [Concomitant]
     Active Substance: GRANISETRON HYDROCHLORIDE
     Route: 042
     Dates: start: 20180504, end: 20180504
  28. SALBUTAMOL [Concomitant]
     Active Substance: ALBUTEROL
     Indication: ASTHMA
     Route: 048
     Dates: start: 201711
  29. SILAPO [Concomitant]
     Indication: PRODUCT USED FOR UNKNOWN INDICATION
     Route: 058
     Dates: start: 20180503
  30. DOXIL [Suspect]
     Active Substance: DOXORUBICIN HYDROCHLORIDE
     Dosage: 99 MG, INFUSION RATE 8.3 ML/MIN FROM 10:00 TO 10:30
     Route: 041
     Dates: start: 20180808, end: 20180808
  31. VINCRISTINE [Suspect]
     Active Substance: VINCRISTINE
     Dosage: INFUSION RATE 2 ML/MIN FROM 07:55 TO 08:00
     Route: 042
     Dates: start: 20180523, end: 20180523
  32. RITUXIMAB. [Suspect]
     Active Substance: RITUXIMAB
     Dosage: 740 MG, (INFUSION RATE 1.7 ML/MIN FROM 07:30 TO 11:30)
     Route: 041
     Dates: start: 20180219, end: 20180219
  33. RITUXIMAB. [Suspect]
     Active Substance: RITUXIMAB
     Dosage: 740 MG, UNK
     Route: 041
     Dates: start: 20180807, end: 20180807
  34. PREDNISONE. [Suspect]
     Active Substance: PREDNISONE
     Indication: DIFFUSE LARGE B-CELL LYMPHOMA
     Dosage: 400 MG, UNK
     Route: 048
     Dates: start: 20180523, end: 20180526
  35. PREDNISONE. [Suspect]
     Active Substance: PREDNISONE
     Dosage: 400 MG, UNK
     Route: 048
     Dates: start: 20180613, end: 20180616
  36. NEULASTA [Suspect]
     Active Substance: PEGFILGRASTIM
     Indication: PROPHYLAXIS
     Route: 058
     Dates: start: 20180514, end: 20180514
  37. PARACETAMOL [Concomitant]
     Active Substance: ACETAMINOPHEN
     Dosage: UNK
     Route: 048
     Dates: start: 20180612, end: 20180612
  38. CLEMASTINE [Concomitant]
     Active Substance: CLEMASTINE
     Indication: PROPHYLAXIS
     Route: 042
     Dates: start: 20180219, end: 20180403
  39. CLEMASTINE [Concomitant]
     Active Substance: CLEMASTINE
     Route: 042
     Dates: start: 20180502, end: 20180502
  40. CLEMASTINE [Concomitant]
     Active Substance: CLEMASTINE
     Route: 042
     Dates: start: 20180703, end: 20180703
  41. KEVATRIL [Concomitant]
     Active Substance: GRANISETRON HYDROCHLORIDE
     Route: 042
     Dates: start: 20180313, end: 20180313
  42. KEVATRIL [Concomitant]
     Active Substance: GRANISETRON HYDROCHLORIDE
     Route: 042
     Dates: start: 20180524, end: 20180524
  43. KEVATRIL [Concomitant]
     Active Substance: GRANISETRON HYDROCHLORIDE
     Route: 042
     Dates: start: 20180614, end: 20180614
  44. KEVATRIL [Concomitant]
     Active Substance: GRANISETRON HYDROCHLORIDE
     Route: 042
     Dates: start: 20180704, end: 20180704
  45. DOXIL [Suspect]
     Active Substance: DOXORUBICIN HYDROCHLORIDE
     Indication: DIFFUSE LARGE B-CELL LYMPHOMA
     Dosage: 99 MG, INFUSION RATE 8.3 ML/MIN FROM 10:35 TO 11:05
     Route: 041
     Dates: start: 20180221, end: 20180221
  46. DOXIL [Suspect]
     Active Substance: DOXORUBICIN HYDROCHLORIDE
     Dosage: 99 MG, INFUSION RATE 8.3 ML/MIN FROM 10:00 TO 10:30
     Route: 041
     Dates: start: 20180313, end: 20180313
  47. DOXIL [Suspect]
     Active Substance: DOXORUBICIN HYDROCHLORIDE
     Dosage: 99 MG, INFUSION RATE 8.3 ML/MIN FROM 10:00 TO 10:30
     Route: 041
     Dates: start: 20180523, end: 20180523
  48. DOXIL [Suspect]
     Active Substance: DOXORUBICIN HYDROCHLORIDE
     Dosage: 99 MG, INFUSION RATE 8.3 ML/MIN FROM 10:00 TO 10:30
     Route: 041
     Dates: start: 20180613, end: 20180613
  49. DOXIL [Suspect]
     Active Substance: DOXORUBICIN HYDROCHLORIDE
     Dosage: 99 MG, INFUSION RATE 8.3 ML/MIN FROM 10:00 TO 10:30
     Route: 041
     Dates: start: 20180704, end: 20180704
  50. CYCLOPHOSPHAMIDE. [Suspect]
     Active Substance: CYCLOPHOSPHAMIDE
     Indication: DIFFUSE LARGE B-CELL LYMPHOMA
     Dosage: 1480 MG, UNK
     Route: 041
     Dates: start: 20180808, end: 20180808
  51. CYCLOPHOSPHAMIDE. [Suspect]
     Active Substance: CYCLOPHOSPHAMIDE
     Dosage: 1480 MG, (INFUSION RATE 8.1 ML/MIN FROM 07:35 TO 10:35)
     Route: 042
     Dates: start: 20180221, end: 20180221
  52. VINCRISTINE [Suspect]
     Active Substance: VINCRISTINE
     Route: 042
     Dates: start: 20180213, end: 20180404
  53. RITUXIMAB. [Suspect]
     Active Substance: RITUXIMAB
     Dosage: 740 MG, (INFUSION RATE 4.2 ML/MIN FROM 08:00 TO 10:00)
     Route: 041
     Dates: start: 20180703, end: 20180703
  54. NEULASTA [Suspect]
     Active Substance: PEGFILGRASTIM
     Route: 058
     Dates: start: 20180706, end: 20180706
  55. NEULASTA [Suspect]
     Active Substance: PEGFILGRASTIM
     Route: 058
     Dates: start: 20180327, end: 20180327
  56. PARACETAMOL [Concomitant]
     Active Substance: ACETAMINOPHEN
     Route: 048
     Dates: start: 20180502, end: 20180502
  57. PARACETAMOL [Concomitant]
     Active Substance: ACETAMINOPHEN
     Route: 048
     Dates: start: 20180703, end: 20180703
  58. CLEMASTINE [Concomitant]
     Active Substance: CLEMASTINE
     Route: 042
     Dates: start: 20180612, end: 20180612
  59. MESNA. [Concomitant]
     Active Substance: MESNA
     Route: 042
     Dates: start: 20180503, end: 20180503
  60. MESNA. [Concomitant]
     Active Substance: MESNA
     Route: 042
     Dates: start: 20180613, end: 20180613
  61. ALLOPURINOL. [Concomitant]
     Active Substance: ALLOPURINOL
     Indication: PROPHYLAXIS
     Route: 048
     Dates: start: 20180213, end: 20180311
  62. AMPHO MORONAL [Concomitant]
     Active Substance: AMPHOTERICIN B
     Indication: PROPHYLAXIS
     Route: 048
     Dates: start: 20180213, end: 20180409
  63. AMPHO MORONAL [Concomitant]
     Active Substance: AMPHOTERICIN B
     Route: 042
     Dates: start: 20180303, end: 20180309
  64. AMPHO MORONAL [Concomitant]
     Active Substance: AMPHOTERICIN B
     Route: 048
     Dates: start: 20180703, end: 20180709
  65. RANITIDINE. [Concomitant]
     Active Substance: RANITIDINE
     Route: 042
     Dates: start: 20180502, end: 20180522
  66. RANITIDINE. [Concomitant]
     Active Substance: RANITIDINE
     Route: 042
     Dates: start: 20180807, end: 20180807
  67. PREDNISOLONE SODIUM SUCCINATE [Concomitant]
     Active Substance: PREDNISOLONE SODIUM SUCCINATE
     Route: 042
     Dates: start: 20180220, end: 20180220
  68. PREDNISOLONE SODIUM SUCCINATE [Concomitant]
     Active Substance: PREDNISOLONE SODIUM SUCCINATE
     Route: 042
     Dates: start: 20180213, end: 20180218
  69. PREDNISOLONE SODIUM SUCCINATE [Concomitant]
     Active Substance: PREDNISOLONE SODIUM SUCCINATE
     Route: 042
     Dates: start: 20180522, end: 20180522
  70. KEVATRIL [Concomitant]
     Active Substance: GRANISETRON HYDROCHLORIDE
     Indication: PROPHYLAXIS
     Route: 042
     Dates: start: 20180221, end: 20180221
  71. KEVATRIL [Concomitant]
     Active Substance: GRANISETRON HYDROCHLORIDE
     Route: 042
     Dates: start: 20180523, end: 20180523
  72. KEVATRIL [Concomitant]
     Active Substance: GRANISETRON HYDROCHLORIDE
     Route: 042
     Dates: start: 20180705, end: 20180705
  73. VINCRISTINE [Suspect]
     Active Substance: VINCRISTINE
     Indication: DIFFUSE LARGE B-CELL LYMPHOMA
     Dosage: INFUSION RATE 2 ML/MIN FROM 07:55 TO 08:00
     Route: 041
     Dates: start: 20180613, end: 20180613
  74. VINCRISTINE [Suspect]
     Active Substance: VINCRISTINE
     Dosage: INFUSION RATE 2 ML/MIN FROM 07:30 TO 07:35
     Route: 041
     Dates: start: 20180221, end: 20180221
  75. VINCRISTINE [Suspect]
     Active Substance: VINCRISTINE
     Dosage: INFUSION RATE 2 ML/MIN FROM 07:30 TO 07:35
     Route: 041
     Dates: start: 20180503, end: 20180503
  76. VINCRISTINE [Suspect]
     Active Substance: VINCRISTINE
     Dosage: INFUSION RATE 2 ML/MIN FROM 07:55 TO 08:00
     Route: 042
     Dates: start: 20180704, end: 20180704
  77. RITUXIMAB. [Suspect]
     Active Substance: RITUXIMAB
     Indication: DIFFUSE LARGE B-CELL LYMPHOMA
     Dosage: 740 MG, (INFUSION RATE 4.2 ML/MIN FROM 07:30 TO 09:30)
     Route: 041
     Dates: start: 20180612, end: 20180612
  78. RITUXIMAB. [Suspect]
     Active Substance: RITUXIMAB
     Dosage: 740 MG, (INFUSION RATE 4.17 ML/MIN FROM 07:30 TO 09:30)
     Route: 041
     Dates: start: 20180502, end: 20180502
  79. PREDNISONE. [Suspect]
     Active Substance: PREDNISONE
     Dosage: 400 MG, UNK
     Route: 048
     Dates: start: 20180808, end: 20180811
  80. NEULASTA [Suspect]
     Active Substance: PEGFILGRASTIM
     Indication: LEUKOPENIA
     Route: 058
     Dates: start: 20180505, end: 20180505
  81. NEULASTA [Suspect]
     Active Substance: PEGFILGRASTIM
     Route: 058
     Dates: start: 20180615, end: 20180615
  82. PARACETAMOL [Concomitant]
     Active Substance: ACETAMINOPHEN
     Indication: PROPHYLAXIS
     Dosage: UNK
     Route: 048
     Dates: start: 20180502, end: 20180522
  83. PARACETAMOL [Concomitant]
     Active Substance: ACETAMINOPHEN
     Dosage: UNK
     Route: 048
     Dates: start: 20180220, end: 20180220
  84. PARACETAMOL [Concomitant]
     Active Substance: ACETAMINOPHEN
     Route: 048
     Dates: start: 20180522, end: 20180522
  85. CLEMASTINE [Concomitant]
     Active Substance: CLEMASTINE
     Route: 042
     Dates: start: 20180220, end: 20180220
  86. CLEMASTINE [Concomitant]
     Active Substance: CLEMASTINE
     Route: 042
     Dates: start: 20180312, end: 20180312
  87. CLEMASTINE [Concomitant]
     Active Substance: CLEMASTINE
     Route: 042
     Dates: start: 20180403, end: 20180403
  88. AMPHO MORONAL [Concomitant]
     Active Substance: AMPHOTERICIN B
     Route: 048
     Dates: start: 20180219, end: 20180226
  89. AMPHO MORONAL [Concomitant]
     Active Substance: AMPHOTERICIN B
     Route: 048
     Dates: start: 20180807, end: 20180813
  90. BISOPROLOL [Concomitant]
     Active Substance: BISOPROLOL
     Indication: HYPERTENSION
     Route: 048
     Dates: start: 20170830, end: 20180719
  91. BISOPROLOL [Concomitant]
     Active Substance: BISOPROLOL
     Route: 048
     Dates: start: 20180720
  92. PREDNISOLONE SODIUM SUCCINATE [Concomitant]
     Active Substance: PREDNISOLONE SODIUM SUCCINATE
     Route: 042
     Dates: start: 20180703, end: 20180703
  93. KEVATRIL [Concomitant]
     Active Substance: GRANISETRON HYDROCHLORIDE
     Route: 042
     Dates: start: 20180222, end: 20180222
  94. KEVATRIL [Concomitant]
     Active Substance: GRANISETRON HYDROCHLORIDE
     Route: 042
     Dates: start: 20180405, end: 20180405
  95. KEVATRIL [Concomitant]
     Active Substance: GRANISETRON HYDROCHLORIDE
     Route: 042
     Dates: start: 20180407, end: 20180407
  96. KEVATRIL [Concomitant]
     Active Substance: GRANISETRON HYDROCHLORIDE
     Route: 042
     Dates: start: 20180808, end: 20180808
  97. VINCRISTINE [Suspect]
     Active Substance: VINCRISTINE
     Dosage: INFUSION RATE 2 ML/MIN FROM 07:30 TO 07:35
     Route: 042
     Dates: start: 20180404, end: 20180404
  98. RITUXIMAB. [Suspect]
     Active Substance: RITUXIMAB
     Dosage: 600 MG, (INFUSION RATE 2.78 ML/MIN FROM 07:30 TO 10:30)
     Route: 041
     Dates: start: 20180312, end: 20180312
  99. PARACETAMOL [Concomitant]
     Active Substance: ACETAMINOPHEN
     Route: 048
     Dates: start: 20180403, end: 20180403
  100. PARACETAMOL [Concomitant]
     Active Substance: ACETAMINOPHEN
     Route: 042
     Dates: start: 20180807, end: 20180807
  101. RANITIDINE. [Concomitant]
     Active Substance: RANITIDINE
     Route: 042
     Dates: start: 20180220, end: 20180220
  102. RANITIDINE. [Concomitant]
     Active Substance: RANITIDINE
     Route: 042
     Dates: start: 20180703, end: 20180703
  103. PREDNISOLONE SODIUM SUCCINATE [Concomitant]
     Active Substance: PREDNISOLONE SODIUM SUCCINATE
     Route: 042
     Dates: start: 20180403, end: 20180403
  104. PANTOZOL [Concomitant]
     Active Substance: PANTOPRAZOLE SODIUM
     Indication: PROPHYLAXIS
     Route: 048
     Dates: start: 20180219
  105. COTRIM [Concomitant]
     Active Substance: SULFAMETHOXAZOLE\TRIMETHOPRIM
     Indication: PROPHYLAXIS
     Dosage: 3 DAYS WEEKLY
     Route: 048
     Dates: start: 20180219
  106. CYCLOPHOSPHAMIDE. [Suspect]
     Active Substance: CYCLOPHOSPHAMIDE
     Dosage: 1480 MG, (INFUSION RATE 4.2 ML/MIN FROM 08:00 TO 10:00)
     Route: 042
     Dates: start: 20180613, end: 20180613
  107. PREDNISONE. [Suspect]
     Active Substance: PREDNISONE
     Dosage: 500 MG, UNK
     Route: 048
     Dates: start: 20180313, end: 20180317
  108. PREDNISONE. [Suspect]
     Active Substance: PREDNISONE
     Dosage: 500 MG, UNK
     Route: 048
     Dates: start: 20180221, end: 20180225
  109. PARACETAMOL [Concomitant]
     Active Substance: ACETAMINOPHEN
     Route: 048
     Dates: start: 20180219, end: 20180219
  110. PARACETAMOL [Concomitant]
     Active Substance: ACETAMINOPHEN
     Route: 048
     Dates: start: 20180312, end: 20180312
  111. MESNA. [Concomitant]
     Active Substance: MESNA
     Route: 042
     Dates: start: 20180808, end: 20180808
  112. AMPHO MORONAL [Concomitant]
     Active Substance: AMPHOTERICIN B
     Route: 048
     Dates: start: 20180502, end: 20180509
  113. RANITIDINE. [Concomitant]
     Active Substance: RANITIDINE
     Route: 042
     Dates: start: 20180219, end: 20180219
  114. RANITIDINE. [Concomitant]
     Active Substance: RANITIDINE
     Route: 042
     Dates: start: 20180403, end: 20180403
  115. RANITIDINE. [Concomitant]
     Active Substance: RANITIDINE
     Route: 042
     Dates: start: 20180502, end: 20180502
  116. RANITIDINE. [Concomitant]
     Active Substance: RANITIDINE
     Route: 042
     Dates: start: 20180522, end: 20180522
  117. ACICLOVIR [Concomitant]
     Active Substance: ACYCLOVIR
     Indication: PROPHYLAXIS
     Route: 048
     Dates: start: 20180219
  118. PREDNISOLONE SODIUM SUCCINATE [Concomitant]
     Active Substance: PREDNISOLONE SODIUM SUCCINATE
     Route: 042
     Dates: start: 20180502, end: 20180502
  119. PREDNISOLONE SODIUM SUCCINATE [Concomitant]
     Active Substance: PREDNISOLONE SODIUM SUCCINATE
     Route: 042
     Dates: start: 20180807, end: 20180807
  120. KEVATRIL [Concomitant]
     Active Substance: GRANISETRON HYDROCHLORIDE
     Route: 042
     Dates: start: 20180404, end: 20180404
  121. CYCLOPHOSPHAMIDE. [Suspect]
     Active Substance: CYCLOPHOSPHAMIDE
     Dosage: 1480 MG, (INFUSION RATE 4.17 ML/MIN FROM 07:35 TO 09:35)
     Route: 042
     Dates: start: 20180313, end: 20180313
  122. CYCLOPHOSPHAMIDE. [Suspect]
     Active Substance: CYCLOPHOSPHAMIDE
     Dosage: 1480 MG, (INFUSION RATE 8.3 ML/MIN FROM 07:35 TO 09:35)
     Route: 042
     Dates: start: 20180404, end: 20180404
  123. VINCRISTINE [Suspect]
     Active Substance: VINCRISTINE
     Dosage: INFUSION RATE 2 ML/MIN FROM 07:30 TO 07:35
     Route: 041
     Dates: start: 20180313, end: 20180313
  124. RITUXIMAB. [Suspect]
     Active Substance: RITUXIMAB
     Dosage: 740 MG, (INFUSION RATE 4.2 ML/MIN FROM 08:00 TO 10:00)
     Route: 041
     Dates: start: 20180522, end: 20180522
  125. PREDNISONE. [Suspect]
     Active Substance: PREDNISONE
     Dosage: 400 MG, UNK
     Route: 048
     Dates: start: 20180704, end: 20180707
  126. PREDNISONE. [Suspect]
     Active Substance: PREDNISONE
     Dosage: 400 MG, UNK
     Route: 048
     Dates: start: 20180503, end: 20180506
  127. NEULASTA [Suspect]
     Active Substance: PEGFILGRASTIM
     Route: 058
     Dates: start: 20180810, end: 20180810
  128. CLEMASTINE [Concomitant]
     Active Substance: CLEMASTINE
     Route: 042
     Dates: start: 20180502, end: 20180522
  129. CLEMASTINE [Concomitant]
     Active Substance: CLEMASTINE
     Route: 042
     Dates: start: 20180807, end: 20180807
  130. MESNA. [Concomitant]
     Active Substance: MESNA
     Route: 042
     Dates: start: 20180313, end: 20180313
  131. MESNA. [Concomitant]
     Active Substance: MESNA
     Route: 042
     Dates: start: 20180704, end: 20180704
  132. AMPHO MORONAL [Concomitant]
     Active Substance: AMPHOTERICIN B
     Route: 048
     Dates: start: 20180312, end: 20180318
  133. RANITIDINE. [Concomitant]
     Active Substance: RANITIDINE
     Indication: PROPHYLAXIS
     Route: 042
     Dates: start: 20180219, end: 20180413
  134. RANITIDINE. [Concomitant]
     Active Substance: RANITIDINE
     Route: 042
     Dates: start: 20180612, end: 20180612
  135. PREDNISOLONE SODIUM SUCCINATE [Concomitant]
     Active Substance: PREDNISOLONE SODIUM SUCCINATE
     Route: 042
     Dates: start: 20180312, end: 20180312
  136. KEVATRIL [Concomitant]
     Active Substance: GRANISETRON HYDROCHLORIDE
     Route: 042
     Dates: start: 20180808, end: 20180808

REACTIONS (20)
  - Oedema peripheral [Recovered/Resolved]
  - Neutropenic sepsis [Recovered/Resolved]
  - Polyneuropathy [Not Recovered/Not Resolved]
  - Pain [Recovered/Resolved]
  - Neutropenia [Not Recovered/Not Resolved]
  - Nausea [Recovered/Resolved]
  - Anaemia [Not Recovered/Not Resolved]
  - Vitamin D deficiency [Not Recovered/Not Resolved]
  - Fibrin D dimer increased [Unknown]
  - C-reactive protein increased [Recovered/Resolved]
  - Lymphoedema [Recovered/Resolved]
  - Leukopenia [Recovered/Resolved]
  - Chills [Unknown]
  - Pulpitis dental [Recovered/Resolved]
  - Dizziness [Recovered/Resolved]
  - Drug therapeutic incompatibility [Recovered/Resolved]
  - Pyrexia [Unknown]
  - Chest pain [Unknown]
  - Asthma [Recovered/Resolved]
  - Deep vein thrombosis [Recovered/Resolved]

NARRATIVE: CASE EVENT DATE: 2018
